FAERS Safety Report 8271344-0 (Version None)
Quarter: 2012Q2

REPORT INFORMATION
  Report Type: 
  Country: None (occurrence: None)
  Receive Date: 20120410
  Receipt Date: 20120404
  Transmission Date: 20120825
  Serious: Yes (Hospitalization)
  Sender: FDA-Public Use
  Company Number: FR-PFIZER INC-2012084635

PATIENT
  Age: 58 Year
  Sex: Female

DRUGS (6)
  1. EPIRUBICIN HYDROCHLORIDE [Suspect]
     Indication: BREAST CANCER
     Dosage: UNK
     Route: 042
     Dates: start: 20020101, end: 20030320
  2. LEVOTHYROXINE SODIUM [Concomitant]
     Dosage: UNK
  3. FEMARA [Suspect]
     Indication: BREAST CANCER
     Dosage: UNK
     Route: 048
     Dates: start: 20090101
  4. LEXOMIL [Concomitant]
     Dosage: UNK
  5. EFFEXOR [Concomitant]
     Dosage: UNK
  6. ZOLPIDEM TARTRATE [Concomitant]
     Dosage: UNK

REACTIONS (1)
  - CONGESTIVE CARDIOMYOPATHY [None]
